FAERS Safety Report 23914690 (Version 1)
Quarter: 2024Q2

REPORT INFORMATION
  Report Type: Spontaneous
  Country: US (occurrence: US)
  Receive Date: 20240529
  Receipt Date: 20240529
  Transmission Date: 20240715
  Serious: No
  Sender: FDA-Public Use
  Company Number: US-TEVA-VS-3199557

PATIENT
  Sex: Female

DRUGS (3)
  1. QVAR [Suspect]
     Active Substance: BECLOMETHASONE DIPROPIONATE
     Indication: Product used for unknown indication
     Dosage: DOSE AND FREQUENCY: 80MCG ONE PUFF TWICE A DAY
     Route: 065
  2. QVAR [Suspect]
     Active Substance: BECLOMETHASONE DIPROPIONATE
  3. QVAR [Suspect]
     Active Substance: BECLOMETHASONE DIPROPIONATE

REACTIONS (3)
  - Dyspnoea [Unknown]
  - Nasopharyngitis [Unknown]
  - Influenza [Unknown]

NARRATIVE: CASE EVENT DATE: 20240201
